FAERS Safety Report 7082450-0 (Version None)
Quarter: 2010Q3

REPORT INFORMATION
  Report Type: 
  Country: None (occurrence: None)
  Receive Date: 20100915
  Receipt Date: 20100107
  Transmission Date: 20110219
  Serious: Yes (Hospitalization)
  Sender: FDA-Public Use
  Company Number: 93288

PATIENT
  Age: 15 Year

DRUGS (1)
  1. ALLOPURINOL [Suspect]
     Dates: start: 20100107

REACTIONS (1)
  - EXTRAVASATION [None]
